FAERS Safety Report 10144742 (Version 1)
Quarter: 2014Q2

REPORT INFORMATION
  Report Type: Spontaneous
  Country: US (occurrence: US)
  Receive Date: 20140430
  Receipt Date: 20140430
  Transmission Date: 20141212
  Serious: Yes (Hospitalization)
  Sender: FDA-Public Use
  Company Number: US-SA-2013SA123531

PATIENT
  Age: 50 Year
  Sex: Female
  Weight: 62.59 kg

DRUGS (10)
  1. LOVENOX [Suspect]
     Indication: DEEP VEIN THROMBOSIS
     Route: 065
     Dates: start: 20131029, end: 20131201
  2. LOVENOX [Suspect]
     Indication: PROTEIN C DEFICIENCY
     Route: 065
     Dates: start: 20131029, end: 20131201
  3. LOVENOX [Suspect]
     Indication: PROTEIN S DEFICIENCY
     Route: 065
     Dates: start: 20131029, end: 20131201
  4. LOVENOX [Suspect]
     Indication: DEEP VEIN THROMBOSIS
     Route: 065
     Dates: start: 20131019
  5. LOVENOX [Suspect]
     Indication: PROTEIN C DEFICIENCY
     Route: 065
     Dates: start: 20131019
  6. LOVENOX [Suspect]
     Indication: PROTEIN S DEFICIENCY
     Route: 065
     Dates: start: 20131019
  7. LOVENOX [Suspect]
     Indication: DEEP VEIN THROMBOSIS
     Route: 065
  8. LOVENOX [Suspect]
     Indication: PROTEIN C DEFICIENCY
     Route: 065
  9. LOVENOX [Suspect]
     Indication: PROTEIN S DEFICIENCY
     Route: 065
  10. COUMADIN [Concomitant]
     Indication: ANTICOAGULANT THERAPY
     Route: 065
     Dates: end: 20131019

REACTIONS (4)
  - Deep vein thrombosis [Recovered/Resolved]
  - Intra-abdominal haematoma [Recovered/Resolved]
  - Weight decreased [Recovered/Resolved]
  - Expired product administered [Unknown]
